FAERS Safety Report 6767997-6 (Version None)
Quarter: 2010Q2

REPORT INFORMATION
  Report Type: 
  Country: None (occurrence: None)
  Receive Date: 20100614
  Receipt Date: 20100607
  Transmission Date: 20101027
  Serious: Yes (Other)
  Sender: FDA-Public Use
  Company Number: A0863345A

PATIENT
  Age: 72 Year
  Sex: Male

DRUGS (12)
  1. ADVAIR DISKUS 100/50 [Suspect]
     Dosage: 1PUFF TWICE PER DAY
     Route: 055
     Dates: start: 20050601
  2. COMBIVENT [Concomitant]
  3. RANITIDINE [Concomitant]
  4. SIMVASTATIN [Concomitant]
  5. NAVELBINE [Concomitant]
  6. UNSPECIFIED MEDICATION [Concomitant]
  7. HYDROCHLOROTHIAZIDE [Concomitant]
  8. ASPIRIN [Concomitant]
  9. GLUCOSAMINE CHONDROITIN [Concomitant]
  10. VITAMIN C [Concomitant]
  11. VITAMIN D [Concomitant]
  12. COZAAR [Concomitant]

REACTIONS (4)
  - ASTHMA [None]
  - DRUG INEFFECTIVE [None]
  - MALAISE [None]
  - PRODUCT QUALITY ISSUE [None]
